FAERS Safety Report 10581072 (Version 1)
Quarter: 2014Q4

REPORT INFORMATION
  Report Type: Spontaneous
  Country: IT (occurrence: None)
  Receive Date: 20141110
  Receipt Date: 20141110
  Transmission Date: 20150529
  Serious: Yes (Hospitalization)
  Sender: FDA-Public Use
  Company Number: FK201404894

PATIENT
  Age: 67 Year
  Sex: Female

DRUGS (2)
  1. OXALIPLATIN (MANUFACTURER UNKNOWN) (OXALIPLATIN) (OXALIPLATIN) [Suspect]
     Active Substance: OXALIPLATIN
     Indication: COLON CANCER
     Route: 042
  2. CAPECITABINE (CAPECITABINE) (CAPECITABINE) [Concomitant]
     Active Substance: CAPECITABINE

REACTIONS (2)
  - Dysaesthesia [None]
  - Cardiomyopathy [None]
